FAERS Safety Report 4286293-2 (Version None)
Quarter: 2004Q1

REPORT INFORMATION
  Report Type: 
  Country: None (occurrence: None)
  Receive Date: 20040115
  Receipt Date: 20021204
  Transmission Date: 20041129
  Serious: Yes (Death)
  Sender: FDA-Public Use
  Company Number: NSADSS2002044399

PATIENT
  Age: 73 Year
  Sex: Male
  Weight: 56.6996 kg

DRUGS (6)
  1. DOXIL [Suspect]
     Indication: MALIGNANT SOFT TISSUE NEOPLASM
     Dosage: 70 MG, INTRAVENOUS DRIP
     Route: 041
     Dates: end: 20020529
  2. ERYTHROPOEITIN (ERYTHROPOIETIN) [Concomitant]
  3. LOPRESSOR [Concomitant]
  4. CARDIAZEM (DILTIAZEM HYDROCHLORIDE) [Concomitant]
  5. ATIVAN [Concomitant]
  6. MORPHINE SULFATE [Concomitant]

REACTIONS (2)
  - CONDITION AGGRAVATED [None]
  - RESPIRATORY FAILURE [None]
